FAERS Safety Report 11490650 (Version 2)
Quarter: 2015Q3

REPORT INFORMATION
  Report Type: Report from Study
  Country: NL (occurrence: NL)
  Receive Date: 20150910
  Receipt Date: 20150929
  Transmission Date: 20151125
  Serious: Yes (Other)
  Sender: FDA-Public Use
  Company Number: NL-ABBVIE-15P-114-1459510-00

PATIENT
  Sex: Female

DRUGS (1)
  1. DUODOPA [Suspect]
     Active Substance: CARBIDOPA\LEVODOPA
     Indication: PARKINSON^S DISEASE
     Dosage: 20/5MG/ML; CONTINUOUS; SEE NARRATIVE
     Route: 050
     Dates: start: 20091119

REACTIONS (2)
  - Mental disorder [Not Recovered/Not Resolved]
  - Parkinson^s disease [Unknown]
